FAERS Safety Report 16179201 (Version 2)
Quarter: 2019Q2

REPORT INFORMATION
  Report Type: Spontaneous
  Country: US (occurrence: US)
  Receive Date: 20190410
  Receipt Date: 20190415
  Transmission Date: 20190711
  Serious: No
  Sender: FDA-Public Use
  Company Number: US-AMGEN INC.-USASP2019054996

PATIENT
  Age: 42 Year
  Sex: Female
  Weight: 175.06 kg

DRUGS (2)
  1. TOPAMAX [Concomitant]
     Active Substance: TOPIRAMATE
     Indication: MIGRAINE
     Dosage: 100 MILLIGRAM
  2. AIMOVIG [Suspect]
     Active Substance: ERENUMAB-AOOE
     Indication: MIGRAINE
     Dosage: 140 MILLIGRAM
     Route: 065
     Dates: start: 20190402, end: 20190402

REACTIONS (5)
  - Fatigue [Unknown]
  - Nausea [Unknown]
  - Pyrexia [Unknown]
  - Asthenia [Unknown]
  - Product storage error [Unknown]

NARRATIVE: CASE EVENT DATE: 20190402
